FAERS Safety Report 25808917 (Version 3)
Quarter: 2025Q4

REPORT INFORMATION
  Report Type: Report from Study
  Country: US (occurrence: US)
  Receive Date: 20250916
  Receipt Date: 20251221
  Transmission Date: 20260118
  Serious: No
  Sender: ABBVIE
  Company Number: US-ABBVIE-6461846

PATIENT
  Age: 66 Year
  Sex: Male

DRUGS (1)
  1. CREON [Suspect]
     Active Substance: PANCRELIPASE AMYLASE\PANCRELIPASE LIPASE\PANCRELIPASE PROTEASE
     Indication: Product used for unknown indication
     Route: 048
     Dates: start: 20250609

REACTIONS (5)
  - Hypertension [Unknown]
  - Diarrhoea [Recovering/Resolving]
  - Headache [Unknown]
  - Asthenia [Recovering/Resolving]
  - Depression [Unknown]

NARRATIVE: CASE EVENT DATE: 20250101
